FAERS Safety Report 19349365 (Version 1)
Quarter: 2021Q2

REPORT INFORMATION
  Report Type: Spontaneous
  Country: US (occurrence: US)
  Receive Date: 20210528
  Receipt Date: 20210528
  Transmission Date: 20210717
  Serious: Yes (Hospitalization)
  Sender: FDA-Public Use
  Company Number: None

PATIENT
  Age: 66 Year
  Sex: Female

DRUGS (7)
  1. FUROSEMIDE. [Concomitant]
     Active Substance: FUROSEMIDE
  2. SILDENAFIL. [Concomitant]
     Active Substance: SILDENAFIL
  3. DASATINIB. [Concomitant]
     Active Substance: DASATINIB
  4. ATORVASTATIN [Concomitant]
     Active Substance: ATORVASTATIN
  5. AMBRISENTAN 10MG TABLETS 30/BO: 10MG MYLAN [Suspect]
     Active Substance: AMBRISENTAN
     Indication: PULMONARY ARTERIAL HYPERTENSION
     Route: 048
     Dates: start: 20190829
  6. POTASSIUM CHLORIDE. [Concomitant]
     Active Substance: POTASSIUM CHLORIDE
  7. LEVOTHYROXINE. [Concomitant]
     Active Substance: LEVOTHYROXINE

REACTIONS (3)
  - Pericardial effusion [None]
  - Right ventricular systolic pressure [None]
  - Acute respiratory failure [None]

NARRATIVE: CASE EVENT DATE: 20210426
